FAERS Safety Report 14630201 (Version 1)
Quarter: 2018Q1

REPORT INFORMATION
  Report Type: Spontaneous
  Country: PR (occurrence: PR)
  Receive Date: 20180313
  Receipt Date: 20180313
  Transmission Date: 20180509
  Serious: No
  Sender: FDA-Public Use
  Company Number: PR-PFIZER INC-2018100293

PATIENT
  Age: 77 Year
  Sex: Female
  Weight: 84.35 kg

DRUGS (1)
  1. IBRANCE [Suspect]
     Active Substance: PALBOCICLIB
     Indication: BREAST CANCER
     Dosage: 75 MG, CYCLIC (DAILY X 21 DAYS/7 OFF)
     Route: 048
     Dates: start: 20180110

REACTIONS (1)
  - Haemoglobin decreased [Unknown]
